FAERS Safety Report 9754391 (Version 1)
Quarter: 2013Q4

REPORT INFORMATION
  Report Type: Spontaneous
  Country: US (occurrence: US)
  Receive Date: 20131213
  Receipt Date: 20131213
  Transmission Date: 20140711
  Serious: Yes (Other)
  Sender: FDA-Public Use
  Company Number: US-BRISTOL-MYERS SQUIBB COMPANY-19879931

PATIENT
  Age: 65 Year
  Sex: Male
  Weight: 124.71 kg

DRUGS (1)
  1. BYETTA [Suspect]
     Indication: TYPE 2 DIABETES MELLITUS
     Route: 058

REACTIONS (5)
  - Thyroid cancer [Unknown]
  - Urticaria [Recovered/Resolved]
  - Injection site pruritus [Unknown]
  - Weight decreased [Recovered/Resolved]
  - Injection site discolouration [Recovered/Resolved]
